FAERS Safety Report 6928310-4 (Version None)
Quarter: 2010Q3

REPORT INFORMATION
  Report Type: 
  Country: None (occurrence: None)
  Receive Date: 20100810
  Receipt Date: 20100802
  Transmission Date: 20110219
  Serious: Yes (Hospitalization)
  Sender: FDA-Public Use
  Company Number: 2009-193332-NL

PATIENT
  Age: 27 Year
  Sex: Female
  Weight: 61.2356 kg

DRUGS (3)
  1. NUVARING [Suspect]
     Indication: CONTRACEPTION
     Dates: start: 20080306, end: 20080322
  2. NUVARING [Suspect]
  3. MULTI-VITAMIN [Concomitant]

REACTIONS (7)
  - GARDNERELLA TEST POSITIVE [None]
  - HAEMOPTYSIS [None]
  - NIGHT SWEATS [None]
  - PULMONARY EMBOLISM [None]
  - RED BLOOD CELL COUNT DECREASED [None]
  - RENAL CYST [None]
  - VULVOVAGINAL MYCOTIC INFECTION [None]
